FAERS Safety Report 6912255-X (Version None)
Quarter: 2010Q3

REPORT INFORMATION
  Report Type: 
  Country: None (occurrence: None)
  Receive Date: 20100806
  Receipt Date: 20080206
  Transmission Date: 20110219
  Serious: No
  Sender: FDA-Public Use
  Company Number: US-PFIZER INC-2008003172

PATIENT
  Sex: Female
  Weight: 53.181 kg

DRUGS (13)
  1. DETROL LA [Suspect]
     Indication: POLLAKIURIA
     Dates: start: 20071201
  2. COREG [Concomitant]
  3. ACTONEL [Concomitant]
  4. ACETYLSALICYLIC ACID SRT [Concomitant]
  5. CALCIUM [Concomitant]
  6. BIOTIN [Concomitant]
  7. LIPITOR [Concomitant]
  8. LORAZEPAM [Concomitant]
  9. MULTI-VITAMINS [Concomitant]
  10. PROPECIA [Concomitant]
  11. XALATAN [Concomitant]
  12. ACIPHEX [Concomitant]
  13. SPIRIVA [Concomitant]

REACTIONS (3)
  - CONSTIPATION [None]
  - DIARRHOEA [None]
  - PRURITUS [None]
